FAERS Safety Report 6917558-0 (Version None)
Quarter: 2010Q3

REPORT INFORMATION
  Report Type: 
  Country: None (occurrence: None)
  Receive Date: 20100806
  Receipt Date: 20100726
  Transmission Date: 20110219
  Serious: Yes (Hospitalization, Other)
  Sender: FDA-Public Use
  Company Number: 2010SP001886

PATIENT
  Age: 37 Year
  Sex: Female

DRUGS (4)
  1. ALVESCO [Suspect]
     Indication: ASTHMA
     Dosage: 600 UG;  BID; INHALATION
     Route: 055
     Dates: start: 20100331, end: 20100331
  2. PREDNISOLONE [Concomitant]
  3. HOKUNALIN [Concomitant]
  4. THEO-DUR [Concomitant]

REACTIONS (4)
  - DYSPNOEA [None]
  - FEELING ABNORMAL [None]
  - SPEECH DISORDER [None]
  - THROAT TIGHTNESS [None]
